FAERS Safety Report 5700921-3 (Version None)
Quarter: 2008Q2

REPORT INFORMATION
  Report Type: 
  Country: None (occurrence: None)
  Receive Date: 20080410
  Receipt Date: 20080404
  Transmission Date: 20081010
  Serious: Yes (Life-Threatening, Hospitalization)
  Sender: FDA-Public Use
  Company Number: B0510325A

PATIENT
  Age: 55 Year
  Sex: Female
  Weight: 54 kg

DRUGS (13)
  1. ZINNAT [Suspect]
     Indication: PERICORONITIS
     Dosage: 250MG THREE TIMES PER DAY
     Route: 048
     Dates: start: 20080226, end: 20080226
  2. NEUZYM [Concomitant]
     Indication: PERICORONITIS
     Dosage: 90MG PER DAY
     Route: 048
     Dates: start: 20080226
  3. LIPITOR [Concomitant]
     Indication: DRUG USE FOR UNKNOWN INDICATION
     Route: 048
  4. OMEPRAZOLE [Concomitant]
     Indication: DRUG USE FOR UNKNOWN INDICATION
     Route: 048
  5. MYSLEE [Concomitant]
     Indication: DRUG USE FOR UNKNOWN INDICATION
     Route: 048
  6. NOVORAPID [Concomitant]
     Indication: DRUG USE FOR UNKNOWN INDICATION
     Route: 058
  7. ALOSENN [Concomitant]
     Indication: DRUG USE FOR UNKNOWN INDICATION
     Route: 048
  8. SELBEX [Concomitant]
     Indication: DRUG USE FOR UNKNOWN INDICATION
     Route: 048
  9. DOGMATYL [Concomitant]
     Indication: DRUG USE FOR UNKNOWN INDICATION
     Route: 065
  10. UNKNOWN DRUG [Concomitant]
     Indication: DRUG USE FOR UNKNOWN INDICATION
     Route: 048
  11. UNKNOWN DRUG [Concomitant]
     Route: 048
  12. LAXOBERON [Concomitant]
     Route: 048
  13. HYPEN [Concomitant]
     Route: 048

REACTIONS (26)
  - ALTERED STATE OF CONSCIOUSNESS [None]
  - ANAPHYLACTIC SHOCK [None]
  - BLOOD PRESSURE DECREASED [None]
  - DEPRESSED LEVEL OF CONSCIOUSNESS [None]
  - DIARRHOEA [None]
  - DRUG ERUPTION [None]
  - DYSARTHRIA [None]
  - DYSPNOEA [None]
  - ERYTHEMA [None]
  - FAECAL INCONTINENCE [None]
  - FALL [None]
  - GENERALISED ERYTHEMA [None]
  - HYPOAESTHESIA ORAL [None]
  - LOSS OF CONSCIOUSNESS [None]
  - LYMPHOCYTE COUNT INCREASED [None]
  - NAUSEA [None]
  - NEUTROPHIL COUNT DECREASED [None]
  - OEDEMA [None]
  - PRURITUS GENERALISED [None]
  - RADIAL PULSE ABNORMAL [None]
  - RASH [None]
  - RED BLOOD CELL COUNT INCREASED [None]
  - SHOCK [None]
  - SWELLING FACE [None]
  - VENTRICULAR EXTRASYSTOLES [None]
  - WHITE BLOOD CELL COUNT INCREASED [None]
